FAERS Safety Report 13329120 (Version 1)
Quarter: 2017Q1

REPORT INFORMATION
  Report Type: Spontaneous
  Country: US (occurrence: US)
  Receive Date: 20170313
  Receipt Date: 20170313
  Transmission Date: 20170428
  Serious: Yes (Other)
  Sender: FDA-Public Use
  Company Number: US-NOVOPROD-534514

PATIENT
  Age: 54 Year
  Sex: Female
  Weight: 70.75 kg

DRUGS (2)
  1. METFORMIN [Concomitant]
     Active Substance: METFORMIN HYDROCHLORIDE
     Indication: TYPE 1 DIABETES MELLITUS
     Dosage: UNKNOWN
     Route: 048
  2. LEVEMIR [Suspect]
     Active Substance: INSULIN DETEMIR
     Indication: TYPE 1 DIABETES MELLITUS
     Dosage: 27 U, BID
     Route: 058
     Dates: start: 20170227, end: 20170301

REACTIONS (5)
  - Nervous system disorder [Unknown]
  - Injection site urticaria [Unknown]
  - Injection site mass [Unknown]
  - Condition aggravated [Unknown]
  - Injection site bruising [Unknown]

NARRATIVE: CASE EVENT DATE: 20170227
